FAERS Safety Report 4745564-3 (Version None)
Quarter: 2005Q3

REPORT INFORMATION
  Report Type: 
  Country: None (occurrence: None)
  Receive Date: 20050815
  Receipt Date: 20050805
  Transmission Date: 20060218
  Serious: Yes (Other)
  Sender: FDA-Public Use
  Company Number: 200511474BWH

PATIENT
  Sex: Female

DRUGS (9)
  1. CIPRO [Suspect]
     Indication: OTITIS EXTERNA
     Dosage: 750 MG, BID, ORAL
     Route: 048
     Dates: start: 20020613, end: 20020731
  2. NEOMYCIN [Suspect]
  3. POLYMYXIN B SULFATE [Suspect]
  4. HYDROCORTISONE OPHTHALMIC SUSPENSION (HYDROCORTISONE) [Suspect]
     Dosage: OPHTHALMIC (OCULAR)
     Route: 047
  5. FLOXIN OTIC [Concomitant]
  6. NEOPLY HC 1% OTIC [Concomitant]
  7. CSF [Concomitant]
  8. GENTIAN VIOLET [Concomitant]
  9. NEOSPORIN [Concomitant]

REACTIONS (11)
  - DEAFNESS [None]
  - EAR DISORDER [None]
  - EAR PAIN [None]
  - EAR PRURITUS [None]
  - HEARING IMPAIRED [None]
  - INNER EAR DISORDER [None]
  - LABYRINTHITIS [None]
  - OTITIS MEDIA CHRONIC [None]
  - TINNITUS [None]
  - TYMPANIC MEMBRANE PERFORATION [None]
  - VERTIGO [None]
